FAERS Safety Report 4315328-3 (Version None)
Quarter: 2004Q1

REPORT INFORMATION
  Report Type: 
  Country: None (occurrence: None)
  Receive Date: 20040309
  Receipt Date: 20040223
  Transmission Date: 20041129
  Serious: Yes (Death)
  Sender: FDA-Public Use
  Company Number: USA040157786

PATIENT
  Age: 38 Year
  Sex: Female

DRUGS (3)
  1. ZYPREXA [Suspect]
     Indication: SCHIZOAFFECTIVE DISORDER
     Dosage: 30 MG DAY
  2. COGENTIN [Concomitant]
  3. RISPERIDONE [Concomitant]

REACTIONS (6)
  - COMPLETED SUICIDE [None]
  - DRUG LEVEL INCREASED [None]
  - HALLUCINATION, AUDITORY [None]
  - LICE INFESTATION [None]
  - OVERDOSE [None]
  - PARANOIA [None]
